APPROVED DRUG PRODUCT: POMALIDOMIDE
Active Ingredient: POMALIDOMIDE
Strength: 1MG
Dosage Form/Route: CAPSULE;ORAL
Application: A210236 | Product #001 | TE Code: AB
Applicant: HETERO LABS LTD UNIT V
Approved: Sep 26, 2024 | RLD: No | RS: No | Type: RX